FAERS Safety Report 9237892 (Version 1)
Quarter: 2013Q2

REPORT INFORMATION
  Report Type: Spontaneous
  Country: US (occurrence: US)
  Receive Date: 20130418
  Receipt Date: 20130418
  Transmission Date: 20140414
  Serious: No
  Sender: FDA-Public Use
  Company Number: US-009507513-1304USA007219

PATIENT
  Age: 67 Year
  Sex: Male

DRUGS (11)
  1. NASONEX [Suspect]
     Indication: RHINORRHOEA
     Dosage: 2 SPRAYS IN EACH NOSTRIL PER DAY
     Route: 045
     Dates: start: 201111
  2. HYDROCODONE [Concomitant]
  3. MORPHINE [Concomitant]
  4. LISINOPRIL [Concomitant]
  5. VESICARE [Concomitant]
  6. DOCUSATE SODIUM [Concomitant]
  7. DONEPEZIL HYDROCHLORIDE [Concomitant]
  8. AMITRIPTYLINE HYDROCHLORIDE [Concomitant]
  9. BACLOFEN [Concomitant]
  10. NEXIUM [Concomitant]
  11. GABAPENTIN [Concomitant]

REACTIONS (1)
  - Epistaxis [Recovering/Resolving]
